FAERS Safety Report 5496011-8 (Version None)
Quarter: 2007Q4

REPORT INFORMATION
  Report Type: 
  Country: None (occurrence: None)
  Receive Date: 20071025
  Receipt Date: 20070109
  Transmission Date: 20080405
  Serious: No
  Sender: FDA-Public Use
  Company Number: A0634921A

PATIENT
  Age: 78 Year
  Sex: Male

DRUGS (7)
  1. ADVAIR DISKUS 100/50 [Suspect]
     Indication: EMPHYSEMA
     Dosage: 1PUFF TWICE PER DAY
     Route: 055
     Dates: start: 20020101
  2. COMBIVENT [Concomitant]
  3. FLONASE [Concomitant]
  4. MIRAPEX [Concomitant]
  5. LEVOTHYROXINE SODIUM [Concomitant]
  6. RANITIDINE HCL [Concomitant]
  7. LORAZEPAM [Concomitant]

REACTIONS (1)
  - DYSPHONIA [None]
